FAERS Safety Report 8862845 (Version 9)
Quarter: 2013Q2

REPORT INFORMATION
  Report Type: Spontaneous
  Country: US (occurrence: US)
  Receive Date: 20121026
  Receipt Date: 20130502
  Transmission Date: 20140414
  Serious: Yes (Death, Hospitalization)
  Sender: FDA-Public Use
  Company Number: US-GLAXOSMITHKLINE-A0998817A

PATIENT
  Age: 63 Year
  Sex: Female
  Weight: 76.4 kg

DRUGS (20)
  1. SUMATRIPTAN SUCCINATE [Suspect]
     Indication: MIGRAINE
     Dosage: 20MG AS REQUIRED
     Route: 045
     Dates: start: 2005
  2. NORCO [Concomitant]
  3. MAGNESIUM [Concomitant]
  4. MODAFINIL [Concomitant]
  5. LIPITOR [Concomitant]
     Indication: HYPERLIPIDAEMIA
  6. LOVAZA [Concomitant]
     Indication: HYPERLIPIDAEMIA
  7. SYNTHROID [Concomitant]
     Indication: HYPOTHYROIDISM
  8. DEXILANT [Concomitant]
     Indication: GASTROOESOPHAGEAL REFLUX DISEASE
  9. ESTRADIOL [Concomitant]
     Indication: POSTMENOPAUSE
  10. EFFEXOR XR [Concomitant]
     Indication: DEPRESSION
  11. LYRICA [Concomitant]
     Indication: NEUROPATHY PERIPHERAL
  12. TOPAMAX [Concomitant]
     Indication: MIGRAINE
  13. PERCOCET [Concomitant]
  14. ROPIVACAINE [Concomitant]
  15. PROVIGIL [Concomitant]
     Indication: SLEEP APNOEA SYNDROME
  16. TRILIPIX [Concomitant]
     Indication: HYPERLIPIDAEMIA
  17. COLACE [Concomitant]
  18. EYE MEDICATION [Concomitant]
  19. ATROVENT [Concomitant]
  20. AMBIEN CR [Concomitant]
     Indication: INSOMNIA

REACTIONS (8)
  - Haemorrhagic transformation stroke [Fatal]
  - Pneumonia [Fatal]
  - Coma [Unknown]
  - Haemorrhagic cerebral infarction [Unknown]
  - Mental status changes [Unknown]
  - Lethargy [Unknown]
  - Acute respiratory failure [Unknown]
  - Hypertensive emergency [Unknown]
